FAERS Safety Report 15830699 (Version 1)
Quarter: 2019Q1

REPORT INFORMATION
  Report Type: Report from Study
  Country: US (occurrence: US)
  Receive Date: 20190116
  Receipt Date: 20190116
  Transmission Date: 20190417
  Serious: Yes (Death, Hospitalization, Other)
  Sender: FDA-Public Use
  Company Number: US-BRISTOL-MYERS SQUIBB COMPANY-BMS-2019-000255

PATIENT
  Age: 61 Year
  Sex: Female

DRUGS (3)
  1. IPILIMUMAB [Suspect]
     Active Substance: IPILIMUMAB
     Indication: PANCREATIC CARCINOMA METASTATIC
     Dosage: 1 MG/KG, UNK
     Route: 065
     Dates: start: 20181210
  2. NIVOLUMAB [Suspect]
     Active Substance: NIVOLUMAB
     Indication: PANCREATIC CARCINOMA METASTATIC
     Dosage: 360 MG, UNK
     Route: 065
     Dates: start: 20181210, end: 20181211
  3. CRS-207 [Suspect]
     Active Substance: INVESTIGATIONAL PRODUCT
     Indication: PANCREATIC CARCINOMA METASTATIC
     Dosage: 1 DF, UNK
     Route: 065
     Dates: start: 20181210

REACTIONS (6)
  - Malignant neoplasm progression [Fatal]
  - Pneumonia [Fatal]
  - Acute kidney injury [Fatal]
  - Escherichia bacteraemia [Fatal]
  - Fatigue [Recovering/Resolving]
  - Malignant pleural effusion [Fatal]

NARRATIVE: CASE EVENT DATE: 20181231
